FAERS Safety Report 23054336 (Version 1)
Quarter: 2023Q4

REPORT INFORMATION
  Report Type: Spontaneous
  Country: CN (occurrence: CN)
  Receive Date: 20231011
  Receipt Date: 20231011
  Transmission Date: 20240109
  Serious: Yes (Hospitalization, Other)
  Sender: FDA-Public Use
  Company Number: CN-ASTELLAS-2023US029928

PATIENT
  Age: 53 Year
  Sex: Female

DRUGS (11)
  1. MICAFUNGIN [Suspect]
     Active Substance: MICAFUNGIN SODIUM
     Indication: Infection prophylaxis
     Dosage: 100 MG, ONCE DAILY (D1-7)
     Route: 042
  2. TACROLIMUS [Concomitant]
     Active Substance: TACROLIMUS
     Indication: Renal transplant
     Route: 048
  3. MYCOPHENOLATE MOFETIL [Concomitant]
     Active Substance: MYCOPHENOLATE MOFETIL
     Indication: Renal transplant
     Route: 048
  4. BASILIXIMAB [Concomitant]
     Active Substance: BASILIXIMAB
     Indication: Renal transplant
     Dosage: 20 MG, UNKNOWN FREQ. (INTRAOPERATIVELY)
     Route: 065
  5. BASILIXIMAB [Concomitant]
     Active Substance: BASILIXIMAB
     Dosage: 20 MG, UNKNOWN FREQ. 4TH DAY
     Route: 042
  6. AMLODIPINE [Concomitant]
     Active Substance: AMLODIPINE BESYLATE
     Indication: Hypertension
     Route: 048
  7. DOXAZOSIN [Concomitant]
     Active Substance: DOXAZOSIN MESYLATE
     Indication: Hypertension
     Dosage: 4 MG, ONCE DAILY (QN) EVERY NIGHT
     Route: 065
  8. METOPROLOL [Concomitant]
     Active Substance: METOPROLOL
     Indication: Atrial fibrillation
     Dosage: 47.5 MG, ONCE DAILY (QN) EVERY NIGHT
     Route: 065
  9. MEROPENEM [Concomitant]
     Active Substance: MEROPENEM
     Indication: Infection prophylaxis
     Dosage: 1000 MG, EVERY 12 HOURS (D1-13)
     Route: 042
  10. DAPTOMYCIN [Concomitant]
     Active Substance: DAPTOMYCIN
     Indication: Infection prophylaxis
     Dosage: 350 MG, ONCE DAILY (D1-7)
     Route: 042
  11. BEMIPARIN [Concomitant]
     Active Substance: BEMIPARIN
     Indication: Thrombosis prophylaxis
     Dosage: 3500 IU, ONCE DAILY (D2-7)
     Route: 058

REACTIONS (2)
  - Thrombotic microangiopathy [Recovered/Resolved]
  - Off label use [Unknown]
